FAERS Safety Report 7867159-5 (Version None)
Quarter: 2011Q4

REPORT INFORMATION
  Report Type: 
  Country: None (occurrence: None)
  Receive Date: 20111028
  Receipt Date: 20111018
  Transmission Date: 20120403
  Serious: Yes (Other)
  Sender: FDA-Public Use
  Company Number: US-BRISTOL-MYERS SQUIBB COMPANY-16170961

PATIENT
  Sex: Female

DRUGS (3)
  1. ONGLYZA [Suspect]
  2. METFORMIN HCL [Suspect]
  3. BENICAR [Suspect]

REACTIONS (1)
  - CREATININE RENAL CLEARANCE DECREASED [None]
